FAERS Safety Report 9239866 (Version 1)
Quarter: 2013Q2

REPORT INFORMATION
  Report Type: Spontaneous
  Country: US (occurrence: US)
  Receive Date: 20130418
  Receipt Date: 20130418
  Transmission Date: 20140414
  Serious: Yes (Other)
  Sender: FDA-Public Use
  Company Number: US-PFIZER INC-2013117787

PATIENT
  Age: 66 Year
  Sex: Male
  Weight: 88.44 kg

DRUGS (9)
  1. CADUET [Suspect]
     Indication: MYOCARDIAL INFARCTION
     Dosage: 5 MG/80 MG, 1X/DAY
     Route: 048
     Dates: start: 2009, end: 20130411
  2. ACTOS [Suspect]
     Indication: ILL-DEFINED DISORDER
     Dosage: 30 MG, UNK
  3. LIPITOR [Concomitant]
     Dosage: UNK
  4. COREG [Concomitant]
     Dosage: UNK
  5. PLAVIX [Concomitant]
     Dosage: 75 MG, UNK
  6. ASPIRIN [Concomitant]
     Dosage: 325 MG, UNK
  7. TRICOR [Concomitant]
     Dosage: 145 MG, 1X/DAY
  8. ZETIA [Concomitant]
     Dosage: 10 MG, 1X/DAY
  9. ACCUPRIL [Concomitant]
     Dosage: 20 MG, 1X/DAY

REACTIONS (3)
  - Renal impairment [Not Recovered/Not Resolved]
  - Local swelling [Not Recovered/Not Resolved]
  - Joint swelling [Not Recovered/Not Resolved]
